FAERS Safety Report 7255267-1 (Version None)
Quarter: 2011Q1

REPORT INFORMATION
  Report Type: 
  Country: None (occurrence: None)
  Receive Date: 20110129
  Receipt Date: 20100312
  Transmission Date: 20110831
  Serious: Yes (Other)
  Sender: FDA-Public Use
  Company Number: US-ABBOTT-10P-163-0632080-00

PATIENT
  Sex: Female
  Weight: 97.61 kg

DRUGS (6)
  1. HUMIRA [Suspect]
     Indication: RHEUMATOID ARTHRITIS
     Dates: start: 20091201, end: 20100105
  2. LANTUS [Concomitant]
     Indication: DIABETES MELLITUS
  3. PERCOCET [Concomitant]
     Indication: PAIN
  4. DIOVAN [Concomitant]
     Indication: HYPERTENSION
  5. LIPITOR [Concomitant]
     Indication: BLOOD CHOLESTEROL INCREASED
  6. NOVOLOG [Concomitant]
     Indication: DIABETES MELLITUS

REACTIONS (7)
  - CONTUSION [None]
  - INSOMNIA [None]
  - FALL [None]
  - VITAMIN D DECREASED [None]
  - PAIN [None]
  - IMPAIRED HEALING [None]
  - JOINT INJURY [None]
